FAERS Safety Report 7755962-1 (Version None)
Quarter: 2011Q3

REPORT INFORMATION
  Report Type: 
  Country: None (occurrence: None)
  Receive Date: 20110908
  Receipt Date: 20110823
  Transmission Date: 20111222
  Serious: Yes (Hospitalization)
  Sender: FDA-Public Use
  Company Number: 2011PROUSA00607

PATIENT
  Age: 68 Year
  Sex: Male

DRUGS (2)
  1. PROVENGE [Suspect]
     Indication: PROSTATE CANCER METASTATIC
     Dosage: 250 ML, SINGLE, INTRAVENOUS
     Route: 042
     Dates: start: 20110722, end: 20110722
  2. PROVENGE [Suspect]
     Dosage: 250 ML, SINGLE, INTRAVENOUS
     Route: 042
     Dates: start: 20110812, end: 20110812

REACTIONS (6)
  - ELECTROCARDIOGRAM ABNORMAL [None]
  - PYREXIA [None]
  - LUNG NEOPLASM [None]
  - ASTHMA [None]
  - URINARY TRACT INFECTION [None]
  - RASH [None]
